FAERS Safety Report 7611910-6 (Version None)
Quarter: 2011Q3

REPORT INFORMATION
  Report Type: 
  Country: None (occurrence: None)
  Receive Date: 20110715
  Receipt Date: 20110701
  Transmission Date: 20111222
  Serious: Yes (Hospitalization)
  Sender: FDA-Public Use
  Company Number: US-UCBSA-036881

PATIENT
  Sex: Female

DRUGS (21)
  1. CIMZIA [Suspect]
     Indication: CROHN'S DISEASE
     Route: 058
     Dates: start: 20090404
  2. ASPIRIN [Concomitant]
  3. PRILOSEC [Concomitant]
  4. PRILOSEC [Concomitant]
     Dosage: 20MG DAILY; OTC
  5. VENLAFAXINE [Concomitant]
  6. XLEAR [Concomitant]
  7. ALBUTEROL SULFATE AUTOHALER [Concomitant]
     Indication: DYSPNOEA
     Dosage: NEBULIZER
  8. MUCINEX [Concomitant]
     Dosage: 1200MG OTC
  9. AMBIEN [Concomitant]
  10. XANAX [Concomitant]
     Dosage: 0.5 TO 1MG EVERY 8 HOURS
  11. ASPIRIN [Concomitant]
     Dosage: 81MG DAILY
  12. CETIRIZINE HCL [Concomitant]
  13. CIMZIA [Suspect]
     Route: 058
  14. MUCINEX [Concomitant]
  15. SPIRIVA [Concomitant]
     Dosage: 18MCG DAILY
  16. ALBUTEROL SULFATE AUTOHALER [Concomitant]
     Dosage: METERED DOSE INHALER
  17. XANAX [Concomitant]
     Indication: ANXIETY
  18. SPIRIVA [Concomitant]
  19. FLUOXETINE [Concomitant]
  20. ADVAIR DISKUS 100/50 [Concomitant]
  21. ADVAIR DISKUS 100/50 [Concomitant]
     Dosage: 500/50 ONE PUFF

REACTIONS (4)
  - BURSITIS [None]
  - ANXIETY [None]
  - CELLULITIS [None]
  - DEPRESSION [None]
